FAERS Safety Report 19838362 (Version 4)
Quarter: 2022Q1

REPORT INFORMATION
  Report Type: Report from Study
  Country: US (occurrence: US)
  Receive Date: 20210916
  Receipt Date: 20220125
  Transmission Date: 20220423
  Serious: Yes (Hospitalization, Other)
  Sender: FDA-Public Use
  Company Number: US-BOEHRINGERINGELHEIM-2021-BI-126885

PATIENT
  Age: 79 Year
  Sex: Male

DRUGS (2)
  1. OFEV [Suspect]
     Active Substance: NINTEDANIB
     Indication: Idiopathic pulmonary fibrosis
     Route: 048
     Dates: start: 20171009, end: 20210710
  2. OFEV [Suspect]
     Active Substance: NINTEDANIB
     Dosage: 150MG BID
     Route: 048
     Dates: start: 20210914, end: 20211219

REACTIONS (11)
  - Malnutrition [Recovered/Resolved]
  - Dehydration [Recovered/Resolved]
  - Diarrhoea [Not Recovered/Not Resolved]
  - Pulmonary fibrosis [Recovering/Resolving]
  - Diarrhoea [Recovered/Resolved]
  - Dental operation [Unknown]
  - Anaemia [Recovering/Resolving]
  - Weight decreased [Recovered/Resolved]
  - Malaise [Unknown]
  - Fatigue [Not Recovered/Not Resolved]
  - Weight decreased [Not Recovered/Not Resolved]

NARRATIVE: CASE EVENT DATE: 20171013
